FAERS Safety Report 24173029 (Version 1)
Quarter: 2024Q3

REPORT INFORMATION
  Report Type: Report from Study
  Country: US (occurrence: US)
  Receive Date: 20240805
  Receipt Date: 20240805
  Transmission Date: 20241016
  Serious: No
  Sender: BIOVITRUM
  Company Number: US-BIOVITRUM-2024-US-010348

PATIENT
  Age: 65 Year
  Sex: Female

DRUGS (1)
  1. DOPTELET [Suspect]
     Active Substance: AVATROMBOPAG MALEATE
     Indication: Immune thrombocytopenia
     Dosage: DAILY AS ORDERED
     Route: 048

REACTIONS (4)
  - Platelet count decreased [Unknown]
  - Product use issue [Unknown]
  - Product distribution issue [Unknown]
  - Incorrect dose administered [Unknown]
